FAERS Safety Report 7343184-8 (Version None)
Quarter: 2011Q1

REPORT INFORMATION
  Report Type: 
  Country: None (occurrence: None)
  Receive Date: 20110310
  Receipt Date: 20110304
  Transmission Date: 20110831
  Serious: Yes (Hospitalization, Other)
  Sender: FDA-Public Use
  Company Number: US-GENZYME-CAMP-1000870

PATIENT
  Sex: Female
  Weight: 233 kg

DRUGS (15)
  1. CAMPATH [Suspect]
     Dosage: UNK
     Dates: start: 20100706, end: 20100719
  2. CAMPATH [Suspect]
     Dosage: 10 MG, UNK
     Dates: start: 20100616
  3. CAMPATH [Suspect]
     Dosage: 10 MG, QOW FOR 14 WEEKS
     Route: 065
     Dates: end: 20110110
  4. ALLOPURINOL [Concomitant]
     Indication: PRODUCT USED FOR UNKNOWN INDICATION
     Dosage: UNK
     Route: 065
  5. POTASSIUM CHLORIDE [Concomitant]
     Indication: PRODUCT USED FOR UNKNOWN INDICATION
     Dosage: UNK
     Route: 065
  6. BACTRIM [Concomitant]
     Indication: PRODUCT USED FOR UNKNOWN INDICATION
     Dosage: UNK
     Route: 065
  7. PREDNISONE TAB [Concomitant]
     Indication: PRODUCT USED FOR UNKNOWN INDICATION
     Dosage: UNK
     Route: 065
  8. VALTREX [Concomitant]
     Indication: PRODUCT USED FOR UNKNOWN INDICATION
     Dosage: UNK
     Route: 065
  9. AMLODIPINE [Concomitant]
     Indication: PRODUCT USED FOR UNKNOWN INDICATION
     Dosage: UNK
     Route: 065
  10. CAMPATH [Suspect]
     Dosage: 30 MG, UNK
     Dates: start: 20100618, end: 20100628
  11. CAMPATH [Suspect]
     Indication: CHRONIC LYMPHOCYTIC LEUKAEMIA
     Dosage: 3 MG, UNK
     Dates: start: 20100615
  12. CAMPATH [Suspect]
     Dosage: 3 MG, UNK
     Dates: start: 20100727
  13. CAMPATH [Suspect]
     Dosage: 10 MG, UNK
  14. CAMPATH [Suspect]
     Dosage: 10 MG, 1X/W FOR 7 WEEKS
     Route: 065
  15. LASIX [Concomitant]
     Indication: PRODUCT USED FOR UNKNOWN INDICATION
     Dosage: UNK
     Route: 065

REACTIONS (5)
  - PLATELET COUNT DECREASED [None]
  - PYREXIA [None]
  - NEUTROPENIA [None]
  - DRUG INEFFECTIVE [None]
  - WHITE BLOOD CELL COUNT DECREASED [None]
